FAERS Safety Report 4745064-0 (Version None)
Quarter: 2005Q3

REPORT INFORMATION
  Report Type: 
  Country: None (occurrence: None)
  Receive Date: 20050811
  Receipt Date: 20050801
  Transmission Date: 20060218
  Serious: Yes (Congenital Anomaly)
  Sender: FDA-Public Use
  Company Number: CIP05001797

PATIENT

DRUGS (1)
  1. ASACOL [Suspect]
     Dosage: TRANSPLACENTAL
     Route: 064

REACTIONS (2)
  - CLEFT PALATE [None]
  - MATERNAL DRUGS AFFECTING FOETUS [None]
